FAERS Safety Report 17506614 (Version 1)
Quarter: 2020Q1

REPORT INFORMATION
  Report Type: Spontaneous
  Country: US (occurrence: US)
  Receive Date: 20200305
  Receipt Date: 20200305
  Transmission Date: 20200409
  Serious: No
  Sender: FDA-Public Use
  Company Number: US-ROCHE-2454644

PATIENT
  Age: 29 Year
  Sex: Female
  Weight: 74.46 kg

DRUGS (4)
  1. XOLAIR [Suspect]
     Active Substance: OMALIZUMAB
     Indication: CHRONIC SPONTANEOUS URTICARIA
     Route: 058
     Dates: start: 20190816, end: 20190913
  2. XYZAL [Concomitant]
     Active Substance: LEVOCETIRIZINE DIHYDROCHLORIDE
     Indication: RHINITIS ALLERGIC
     Route: 048
     Dates: start: 20190724
  3. PEPCID [Concomitant]
     Active Substance: FAMOTIDINE
     Dosage: START DATE : MORE THAN A YEAR
     Route: 048
  4. FLORAJEN3 [Concomitant]
     Dosage: START DATE : UNKNOWN, ONGOING: YES, MORE THAN A YEAR
     Route: 003
     Dates: start: 20190724

REACTIONS (2)
  - Protein urine present [Not Recovered/Not Resolved]
  - Weight increased [Recovering/Resolving]

NARRATIVE: CASE EVENT DATE: 20190914
